FAERS Safety Report 6687377-1 (Version None)
Quarter: 2010Q2

REPORT INFORMATION
  Report Type: 
  Country: None (occurrence: None)
  Receive Date: 20100415
  Receipt Date: 20100401
  Transmission Date: 20101027
  Serious: Yes (Hospitalization)
  Sender: FDA-Public Use
  Company Number: 009657

PATIENT
  Sex: Male

DRUGS (2)
  1. LACOSAMIDE [Suspect]
     Dosage: (100 MG BID)
     Dates: start: 20100305
  2. LEVETIRACETAM [Suspect]
     Dosage: (1250 MG BID), (1000 MG BID), (500 MG BID)

REACTIONS (5)
  - AGGRESSION [None]
  - CONDITION AGGRAVATED [None]
  - MEDICAL DEVICE PAIN [None]
  - NO THERAPEUTIC RESPONSE [None]
  - PSYCHOTIC DISORDER [None]
